FAERS Safety Report 8846595 (Version 2)
Quarter: 2012Q4

REPORT INFORMATION
  Report Type: 
  Country: DE (occurrence: DE)
  Receive Date: 20121017
  Receipt Date: 20121224
  Transmission Date: 20130627
  Serious: Yes (Life-Threatening, Hospitalization)
  Sender: FDA-Public Use
  Company Number: DE-ROCHE-1145071

PATIENT
  Sex: Male
  Weight: 57 kg

DRUGS (10)
  1. TOCILIZUMAB [Suspect]
     Indication: RHEUMATOID ARTHRITIS
     Dosage: 8 mg/kg; monthly dose 640 mg
     Route: 042
     Dates: start: 20100426, end: 20120418
  2. TOCILIZUMAB [Suspect]
     Route: 042
     Dates: start: 20120102
  3. TOCILIZUMAB [Suspect]
     Route: 042
     Dates: start: 20120130
  4. TOCILIZUMAB [Suspect]
     Route: 042
     Dates: start: 20120207
  5. TOCILIZUMAB [Suspect]
     Route: 042
     Dates: start: 20120326
  6. DICLAC [Concomitant]
     Indication: RHEUMATOID ARTHRITIS
     Route: 065
     Dates: start: 200706
  7. PREDNISOLON [Concomitant]
     Indication: RHEUMATOID ARTHRITIS
     Route: 065
     Dates: start: 200706
  8. METEX [Concomitant]
     Indication: RHEUMATOID ARTHRITIS
     Route: 065
     Dates: start: 200807
  9. KALINOR [Concomitant]
     Indication: HYPOCALCAEMIA
  10. CALCIUM [Concomitant]
     Indication: HYPOCALCAEMIA

REACTIONS (3)
  - Infective exacerbation of chronic obstructive airways disease [Recovering/Resolving]
  - Pyrexia [Recovered/Resolved]
  - Lung infiltration [Recovering/Resolving]
